FAERS Safety Report 5322991-7 (Version None)
Quarter: 2007Q2

REPORT INFORMATION
  Report Type: 
  Country: None (occurrence: None)
  Receive Date: 20070220
  Receipt Date: 20070102
  Transmission Date: 20071010
  Serious: No
  Sender: FDA-Public Use
  Company Number: WAES 0701USA00296

PATIENT

DRUGS (3)
  1. JANUVIA [Suspect]
     Indication: DIABETES MELLITUS
     Dosage: PO
     Route: 048
  2. ACTOS [Concomitant]
  3. METFORMIN [Concomitant]

REACTIONS (1)
  - MYALGIA [None]
